FAERS Safety Report 7773940 (Version 9)
Quarter: 2013Q1

REPORT INFORMATION
  Report Type: Spontaneous
  Country: US (occurrence: US)
  Receive Date: 20110125
  Receipt Date: 20130204
  Transmission Date: 20140127
  Serious: Yes (Life-Threatening, Hospitalization, Other)
  Sender: FDA-Public Use
  Company Number: US-009507513-1101USA02184

PATIENT
  Sex: 0

DRUGS (6)
  1. FOSAMAX [Suspect]
     Indication: HORMONE REPLACEMENT THERAPY
     Dosage: 70 MG, UNK
     Route: 048
     Dates: start: 200402, end: 200608
  2. FORTEO [Suspect]
     Indication: OSTEOPOROSIS
  3. BONIVA [Suspect]
     Indication: OSTEOPOROSIS
     Dosage: 150 MG, UNK
     Route: 048
     Dates: start: 200608
  4. CALCIUM (UNSPECIFIED) (+) VITAMIN D (UNSPECIFIED) [Concomitant]
     Dosage: UNK MG, UNK
  5. MK-9278 [Concomitant]
  6. HORMONES (UNSPECIFIED) [Concomitant]
     Indication: HORMONE REPLACEMENT THERAPY
     Route: 048
     Dates: start: 2002

REACTIONS (129)
  - Gastric disorder [Unknown]
  - Renal disorder [Unknown]
  - Cerebrovascular accident [Unknown]
  - Femur fracture [Unknown]
  - Femur fracture [Unknown]
  - Radius fracture [Unknown]
  - Pelvic fracture [Unknown]
  - Pancreatitis [Not Recovered/Not Resolved]
  - Spinal compression fracture [Unknown]
  - Spinal compression fracture [Unknown]
  - Spinal compression fracture [Unknown]
  - Convulsion [Unknown]
  - Convulsion [Unknown]
  - Fracture nonunion [Unknown]
  - Appendix disorder [Unknown]
  - Chronic obstructive pulmonary disease [Not Recovered/Not Resolved]
  - Anaemia postoperative [Recovered/Resolved]
  - Urinary tract infection [Unknown]
  - Infection [Unknown]
  - Medical device complication [Unknown]
  - Osteoarthritis [Unknown]
  - Dehydration [Recovered/Resolved]
  - Colitis [Recovering/Resolving]
  - Hypokalaemia [Unknown]
  - Tendon disorder [Unknown]
  - Hypertensive crisis [Unknown]
  - Open reduction of fracture [Unknown]
  - Open reduction of fracture [Unknown]
  - Leg amputation [Unknown]
  - Cerebral infarction [Unknown]
  - Pleural effusion [Unknown]
  - Cardiac failure congestive [Unknown]
  - Lobar pneumonia [Unknown]
  - Vascular headache [Unknown]
  - Dyspnoea [Unknown]
  - Angiopathy [Unknown]
  - Cerebral small vessel ischaemic disease [Unknown]
  - Lumbar spinal stenosis [Unknown]
  - Migraine [Unknown]
  - Hypercalcaemia [Unknown]
  - Urinary tract infection [Unknown]
  - Dementia [Unknown]
  - Transfusion reaction [Unknown]
  - Urinary incontinence [Unknown]
  - Anaemia of chronic disease [Unknown]
  - Surgery [Unknown]
  - Device failure [Unknown]
  - Oedema [Unknown]
  - Sepsis [Unknown]
  - Cystoscopy [Unknown]
  - Abdominal pain [Unknown]
  - Pain in extremity [Unknown]
  - Vomiting [Unknown]
  - Pyrexia [Unknown]
  - Nausea [Unknown]
  - Vomiting [Unknown]
  - Vomiting [Unknown]
  - Nausea [Unknown]
  - Nausea [Unknown]
  - Nausea [Unknown]
  - Ankle fracture [Recovering/Resolving]
  - Foot fracture [Unknown]
  - Radiculopathy [Unknown]
  - Dyspnoea [Unknown]
  - Intervertebral disc degeneration [Unknown]
  - Fall [Unknown]
  - Vitamin D deficiency [Unknown]
  - Calcium deficiency [Unknown]
  - Rhinitis allergic [Unknown]
  - Depression [Unknown]
  - Synovitis [Unknown]
  - Fatigue [Not Recovered/Not Resolved]
  - Spinal fracture [Unknown]
  - Spinal column stenosis [Unknown]
  - Tendonitis [Unknown]
  - Rotator cuff syndrome [Unknown]
  - Sciatica [Not Recovered/Not Resolved]
  - Muscle strain [Unknown]
  - Mesenteritis [Unknown]
  - Lymphadenitis [Unknown]
  - Diverticulum [Unknown]
  - Hiatus hernia [Unknown]
  - Neuropathy peripheral [Unknown]
  - Peripheral vascular disorder [Unknown]
  - Hypertensive heart disease [Unknown]
  - Hyperlipidaemia [Unknown]
  - Deep vein thrombosis [Unknown]
  - Medical device complication [Unknown]
  - Diabetic retinopathy [Unknown]
  - Hypoaesthesia [Unknown]
  - Chronic sinusitis [Not Recovered/Not Resolved]
  - Anxiety [Unknown]
  - Pollakiuria [Unknown]
  - Hyperglycaemia [Unknown]
  - Diabetes mellitus inadequate control [Not Recovered/Not Resolved]
  - Balance disorder [Unknown]
  - Anaemia vitamin B12 deficiency [Unknown]
  - Diverticulitis [Unknown]
  - Asthma [Unknown]
  - Benign neoplasm of adrenal gland [Unknown]
  - Joint effusion [Unknown]
  - Osteoarthritis [Unknown]
  - Fall [Unknown]
  - Foot deformity [Unknown]
  - Nail disorder [Unknown]
  - Pulse absent [Unknown]
  - Muscle strain [Unknown]
  - Muscle atrophy [Unknown]
  - Pain [Unknown]
  - Muscular weakness [Unknown]
  - Ligament rupture [Unknown]
  - Laceration [Unknown]
  - Contusion [Unknown]
  - Bursitis [Unknown]
  - Osteoarthritis [Unknown]
  - Cellulitis [Recovered/Resolved]
  - Skin lesion [Unknown]
  - Tenderness [Unknown]
  - Asthenia [Unknown]
  - Nausea [Unknown]
  - Abdominal distension [Unknown]
  - Dizziness [Unknown]
  - Bone pain [Unknown]
  - Pain in extremity [Unknown]
  - Musculoskeletal pain [Unknown]
  - Arthralgia [Unknown]
  - Pain in extremity [Unknown]
  - Joint swelling [Unknown]
  - Arthralgia [Unknown]
